FAERS Safety Report 17402208 (Version 1)
Quarter: 2020Q1

REPORT INFORMATION
  Report Type: Spontaneous
  Country: US (occurrence: US)
  Receive Date: 20200127
  Receipt Date: 20200127
  Transmission Date: 20200409
  Serious: Yes (Hospitalization)
  Sender: FDA-Public Use
  Company Number: None

PATIENT
  Age: 59 Year
  Sex: Male

DRUGS (25)
  1. AZITHROMYCIN ANHYDROUS. [Concomitant]
     Active Substance: AZITHROMYCIN ANHYDROUS
  2. LOSARTAN POT [Concomitant]
     Active Substance: LOSARTAN POTASSIUM
  3. DICLOFENAC [Concomitant]
     Active Substance: DICLOFENAC
  4. METRONIDAZOL [Concomitant]
     Active Substance: METRONIDAZOLE
  5. PROAIR HFA [Concomitant]
     Active Substance: ALBUTEROL SULFATE
  6. CLONAZEPAM. [Concomitant]
     Active Substance: CLONAZEPAM
  7. LEFLUNOMIDE. [Concomitant]
     Active Substance: LEFLUNOMIDE
  8. PREDNISONE. [Concomitant]
     Active Substance: PREDNISONE
  9. BACLOFEN. [Concomitant]
     Active Substance: BACLOFEN
  10. CELECOXIB. [Concomitant]
     Active Substance: CELECOXIB
  11. ROSUVASTATIN. [Concomitant]
     Active Substance: ROSUVASTATIN
  12. DIPHEN/ATROP [Concomitant]
     Active Substance: ATROPINE SULFATE\DIPHENOXYLATE
  13. CLOPIDOGREL [Concomitant]
     Active Substance: CLOPIDOGREL BISULFATE
  14. FENOFIBRATE. [Concomitant]
     Active Substance: FENOFIBRATE
  15. METFORMIN [Concomitant]
     Active Substance: METFORMIN HYDROCHLORIDE
  16. SUCRALFATE. [Concomitant]
     Active Substance: SUCRALFATE
  17. ENBREL [Suspect]
     Active Substance: ETANERCEPT
     Indication: PSORIATIC ARTHROPATHY
     Route: 058
     Dates: start: 20170622
  18. ATENOLOL. [Concomitant]
     Active Substance: ATENOLOL
  19. CIPROFLOXACIN. [Concomitant]
     Active Substance: CIPROFLOXACIN
  20. CEFUROXIME. [Concomitant]
     Active Substance: CEFUROXIME
  21. DIAZEPAM. [Concomitant]
     Active Substance: DIAZEPAM
  22. DICYCLOMINE [Concomitant]
     Active Substance: DICYCLOMINE HYDROCHLORIDE
  23. SMZ/TMP DS [Concomitant]
     Active Substance: SULFAMETHOXAZOLE\TRIMETHOPRIM
  24. LOSARTAN/HCT [Concomitant]
     Active Substance: HYDROCHLOROTHIAZIDE\LOSARTAN POTASSIUM
  25. ONDANSETRON [Concomitant]
     Active Substance: ONDANSETRON

REACTIONS (1)
  - Diverticulitis [None]

NARRATIVE: CASE EVENT DATE: 201912
